FAERS Safety Report 9687003 (Version 2)
Quarter: 2013Q4

REPORT INFORMATION
  Report Type: Spontaneous
  Country: JP (occurrence: JP)
  Receive Date: 20131113
  Receipt Date: 20131127
  Transmission Date: 20140711
  Serious: Yes (Other)
  Sender: FDA-Public Use
  Company Number: JP-SUCAMPO PHARMA AMERICAS, INC-SPI201300783

PATIENT
  Age: 74 Year
  Sex: Female
  Weight: 36 kg

DRUGS (10)
  1. AMITIZA [Suspect]
     Indication: CONSTIPATION
     Dosage: 24 MCG, BID
     Route: 048
     Dates: start: 20130910, end: 20131024
  2. PLETAL [Concomitant]
     Indication: CEREBRAL INFARCTION
     Dosage: 50 MG, BID
     Route: 048
  3. DIOVAN [Concomitant]
     Indication: HYPERTENSION
     Dosage: 80 MG, QD
     Route: 048
  4. AMLODIPINE [Concomitant]
     Indication: HYPERTENSION
     Dosage: 5 MG, QD
  5. PURSENNID [Concomitant]
     Indication: CONSTIPATION
     Dosage: 24 MG, QD
     Route: 048
  6. MAGMITT [Concomitant]
     Indication: CONSTIPATION
     Dosage: 500 MG, TID
     Route: 048
     Dates: start: 20130910
  7. GASTER [Concomitant]
     Indication: ABDOMINAL PAIN UPPER
     Dosage: 10 MG, BID
     Route: 048
     Dates: start: 20130910, end: 20130923
  8. GASTER [Concomitant]
     Indication: HAEMORRHAGIC EROSIVE GASTRITIS
     Dosage: 20 MG, BID
     Route: 048
     Dates: start: 20130925, end: 20131022
  9. MUCOSTA [Concomitant]
     Indication: ABDOMINAL PAIN UPPER
     Dosage: 100 MG, TID
     Dates: start: 20130910, end: 20130923
  10. MUCOSTA [Concomitant]
     Indication: HAEMORRHAGIC EROSIVE GASTRITIS
     Dosage: 100 MG, TID
     Dates: start: 20130925, end: 20131008

REACTIONS (5)
  - Haemorrhagic erosive gastritis [Recovering/Resolving]
  - Oropharyngeal discomfort [Recovering/Resolving]
  - Decreased appetite [Recovering/Resolving]
  - Nausea [Recovering/Resolving]
  - Abdominal pain upper [Recovering/Resolving]
